FAERS Safety Report 5363279-8 (Version None)
Quarter: 2007Q2

REPORT INFORMATION
  Report Type: 
  Country: None (occurrence: None)
  Receive Date: 20070530
  Receipt Date: 20070104
  Transmission Date: 20071010
  Serious: No
  Sender: FDA-Public Use
  Company Number: 2007PV027823

PATIENT
  Age: 60 Year
  Sex: Female
  Weight: 92.9874 kg

DRUGS (4)
  1. BYETTA [Suspect]
     Indication: DIABETES MELLITUS NON-INSULIN-DEPENDENT
     Dates: start: 20060301, end: 20060501
  2. BYETTA [Suspect]
     Indication: DIABETES MELLITUS NON-INSULIN-DEPENDENT
     Dates: start: 20060501
  3. METFORMIN HCL [Concomitant]
  4. SYNTHROID [Concomitant]

REACTIONS (2)
  - INJECTION SITE PAIN [None]
  - WEIGHT DECREASED [None]
